FAERS Safety Report 7070285-4 (Version None)
Quarter: 2010Q4

REPORT INFORMATION
  Report Type: 
  Country: None (occurrence: None)
  Receive Date: 20101028
  Receipt Date: 20101006
  Transmission Date: 20110411
  Serious: No
  Sender: FDA-Public Use
  Company Number: US-WYE-H18041210

PATIENT
  Sex: Female
  Weight: 79.9 kg

DRUGS (15)
  1. PROTONIX [Suspect]
     Indication: GASTROOESOPHAGEAL REFLUX DISEASE
     Dates: start: 20101006
  2. ZOLOFT [Concomitant]
  3. LEVOXYL [Concomitant]
  4. ESTRADIOL [Concomitant]
  5. TEMAZEPAM [Concomitant]
  6. ZIAC [Concomitant]
  7. CALCIUM [Concomitant]
  8. VITAMIN D [Concomitant]
  9. ALBUTEROL [Concomitant]
  10. BIOTIN [Concomitant]
  11. PLAVIX [Concomitant]
  12. PREVACID [Concomitant]
  13. RANITIDINE [Concomitant]
  14. FLONASE [Concomitant]
  15. LISINOPRIL [Concomitant]

REACTIONS (1)
  - PRURITUS [None]
